FAERS Safety Report 20741931 (Version 1)
Quarter: 2022Q2

REPORT INFORMATION
  Report Type: Spontaneous
  Country: FR (occurrence: FR)
  Receive Date: 20220423
  Receipt Date: 20220423
  Transmission Date: 20220721
  Serious: Yes (Hospitalization)
  Sender: FDA-Public Use
  Company Number: None

PATIENT
  Age: 78 Year
  Sex: Female

DRUGS (5)
  1. CARBOPLATIN [Suspect]
     Active Substance: CARBOPLATIN
     Indication: Lung neoplasm malignant
     Dosage: FREQUENCY TIME: 1 CYCLICAL, THERAPY START DATE: ASKU
     Route: 042
     Dates: end: 20220202
  2. RIFAMPIN [Suspect]
     Active Substance: RIFAMPIN
     Indication: Wound
     Dosage: DURATION-12 DAYS
     Route: 048
     Dates: start: 20220225, end: 20220309
  3. TAXOL [Suspect]
     Active Substance: PACLITAXEL
     Indication: Lung neoplasm malignant
     Dosage: FREQUENCY TIME: 1 CYCLICAL, THERAPY START DATE: ASKU
     Route: 042
     Dates: end: 20220202
  4. KEYTRUDA [Suspect]
     Active Substance: PEMBROLIZUMAB
     Indication: Lung neoplasm malignant
     Dosage: FREQUENCY TIME: 1 CYCLICAL, THERAPY START DATE: ASKU
     Route: 042
     Dates: end: 20220202
  5. OFLOXACIN [Suspect]
     Active Substance: OFLOXACIN
     Indication: Wound
     Dosage: DURATION-12 DAYS
     Route: 048
     Dates: start: 20220225, end: 20220309

REACTIONS (1)
  - Dermatitis bullous [Unknown]

NARRATIVE: CASE EVENT DATE: 20220309
